FAERS Safety Report 16014229 (Version 1)
Quarter: 2019Q1

REPORT INFORMATION
  Report Type: Spontaneous
  Country: SI (occurrence: SI)
  Receive Date: 20190227
  Receipt Date: 20190227
  Transmission Date: 20190418
  Serious: Yes (Hospitalization, Other)
  Sender: FDA-Public Use
  Company Number: SI-BAYER-2019-038354

PATIENT
  Age: 74 Year
  Sex: Male

DRUGS (8)
  1. SPIRONOLACTONE. [Concomitant]
     Active Substance: SPIRONOLACTONE
  2. FUROSEMIDE. [Concomitant]
     Active Substance: FUROSEMIDE
  3. ATORVASTATIN [Concomitant]
     Active Substance: ATORVASTATIN
  4. BISOPROLOL [Concomitant]
     Active Substance: BISOPROLOL
  5. INSULIN [Concomitant]
     Active Substance: INSULIN NOS
  6. XARELTO [Suspect]
     Active Substance: RIVAROXABAN
     Indication: ATRIAL FIBRILLATION
     Dosage: 20 MG, QD
  7. ASPIRIN PROTECT 100 MG [Suspect]
     Active Substance: ASPIRIN
     Indication: CORONARY ARTERY DISEASE
     Dosage: 100 MG, UNK
  8. VALSARTAN. [Concomitant]
     Active Substance: VALSARTAN

REACTIONS (10)
  - Chest pain [Recovered/Resolved]
  - Chronic kidney disease [None]
  - Suffocation feeling [Recovered/Resolved]
  - Epistaxis [Recovered/Resolved]
  - Coronary artery disease [None]
  - Renal impairment [None]
  - Acute coronary syndrome [Recovered/Resolved]
  - Peripheral swelling [Recovered/Resolved]
  - Dyspnoea [Recovered/Resolved]
  - Product administration error [None]
